FAERS Safety Report 6136646-2 (Version None)
Quarter: 2009Q1

REPORT INFORMATION
  Report Type: 
  Country: None (occurrence: None)
  Receive Date: 20090330
  Receipt Date: 20090324
  Transmission Date: 20090719
  Serious: Yes (Hospitalization)
  Sender: FDA-Public Use
  Company Number: B0545246A

PATIENT
  Sex: Male
  Weight: 86 kg

DRUGS (1)
  1. SERETIDE [Suspect]
     Indication: CHRONIC OBSTRUCTIVE PULMONARY DISEASE
     Dosage: 2PUFF TWICE PER DAY
     Route: 055

REACTIONS (2)
  - CHEST PAIN [None]
  - PNEUMONECTOMY [None]
